FAERS Safety Report 23521514 (Version 1)
Quarter: 2024Q1

REPORT INFORMATION
  Report Type: Spontaneous
  Country: CA (occurrence: CA)
  Receive Date: 20240214
  Receipt Date: 20240214
  Transmission Date: 20240409
  Serious: Yes (Other)
  Sender: FDA-Public Use
  Company Number: CA-BAXTER-2024BAX012658

PATIENT
  Age: 74 Year
  Sex: Female
  Weight: 79 kg

DRUGS (12)
  1. SODIUM CHLORIDE [Suspect]
     Active Substance: SODIUM CHLORIDE
     Indication: Postoperative care
     Dosage: AT AN UNSPECIFIED DOSE AND FREQUENCY
     Route: 047
  2. SODIUM CHLORIDE [Suspect]
     Active Substance: SODIUM CHLORIDE
     Dosage: AT AN UNSPECIFIED DOSE AND FREQUENCY
     Route: 047
  3. BREO ELLIPTA [Concomitant]
     Active Substance: FLUTICASONE FUROATE\VILANTEROL TRIFENATATE
     Indication: Product used for unknown indication
     Dosage: AT AN UNSPECIFIED DOSE AND FREQUENCY (DOSAGE FORM: INHALATION)
     Route: 065
  4. CYANOCOBALAMIN [Concomitant]
     Active Substance: CYANOCOBALAMIN
     Indication: Product used for unknown indication
     Dosage: AT AN UNSPECIFIED DOSE AND FREQUENCY
     Route: 048
  5. ERGOCALCIFEROL [Concomitant]
     Active Substance: ERGOCALCIFEROL
     Indication: Product used for unknown indication
     Dosage: AT AN UNSPECIFIED DOSE AND FREQUENCY
     Route: 048
  6. FISH OIL [Concomitant]
     Active Substance: FISH OIL
     Indication: Product used for unknown indication
     Dosage: (FISH OIL 600 EPA/300 DHA) AT AN UNSPECIFIED DOSE AND FREQUENCY
     Route: 048
  7. HYALURONATE SODIUM;UREA [Concomitant]
     Indication: Product used for unknown indication
     Dosage: AT AN UNSPECIFIED DOSE AND FREQUENCY
     Route: 047
  8. METFORMIN [Concomitant]
     Active Substance: METFORMIN HYDROCHLORIDE
     Indication: Product used for unknown indication
     Dosage: 500 MILLIGRAMS (MG) 1 EVERY 1 DAY
     Route: 048
  9. METOPROLOL TARTRATE [Concomitant]
     Active Substance: METOPROLOL TARTRATE
     Indication: Product used for unknown indication
     Dosage: 50 MILLIGRAMS (MG) 1 EVERY 12 HOURS
     Route: 048
  10. PREDNISONE [Concomitant]
     Active Substance: PREDNISONE
     Indication: Product used for unknown indication
     Dosage: AT AN UNSPECIFIED DOSE AND FREQUENCY (DOSAGE FORM: NOT SPECIFIED)
     Route: 048
  11. ROSUVASTATIN [Concomitant]
     Active Substance: ROSUVASTATIN
     Indication: Product used for unknown indication
     Dosage: 500 MILLIGRAMS (MG) 1 EVERY 1 DAY (DOSAGE FORM: NOT SPECIFIED)
     Route: 048
  12. WARFARIN [Concomitant]
     Active Substance: WARFARIN
     Indication: Product used for unknown indication
     Dosage: 5 MILLIGRAMS (MG) 1 EVERY 1 DAY
     Route: 048

REACTIONS (7)
  - Abnormal sensation in eye [Recovered/Resolved]
  - Dry eye [Recovered/Resolved]
  - Eye haemorrhage [Recovered/Resolved]
  - Eye irritation [Recovered/Resolved]
  - Eye pain [Recovered/Resolved]
  - Product availability issue [Recovered/Resolved]
  - Therapy interrupted [Recovered/Resolved]
